FAERS Safety Report 6124684-5 (Version None)
Quarter: 2009Q1

REPORT INFORMATION
  Report Type: 
  Country: None (occurrence: None)
  Receive Date: 20090319
  Receipt Date: 20090304
  Transmission Date: 20090719
  Serious: Yes (Hospitalization)
  Sender: FDA-Public Use
  Company Number: FR-GENENTECH-279131

PATIENT
  Sex: Male

DRUGS (9)
  1. MABTHERA [Suspect]
     Indication: EXTRANODAL MARGINAL ZONE B-CELL LYMPHOMA (MALT TYPE)
     Dosage: 690 MG, Q3W
     Route: 042
     Dates: start: 20081210
  2. CYCLOPHOSPHAMIDE [Suspect]
     Indication: EXTRANODAL MARGINAL ZONE B-CELL LYMPHOMA (MALT TYPE)
     Dosage: 1380 MG, Q3W
     Route: 042
     Dates: start: 20081119
  3. DOXORUBICIN HCL [Suspect]
     Indication: EXTRANODAL MARGINAL ZONE B-CELL LYMPHOMA (MALT TYPE)
     Dosage: 92 MG, Q3W
     Route: 042
     Dates: start: 20081119
  4. VINCRISTINE [Suspect]
     Indication: EXTRANODAL MARGINAL ZONE B-CELL LYMPHOMA (MALT TYPE)
     Dosage: 2 MG, Q3W
     Route: 042
     Dates: start: 20081119
  5. METHOTREXATE [Concomitant]
     Indication: DRUG USE FOR UNKNOWN INDICATION
  6. ARANESP [Concomitant]
     Indication: ANAEMIA
  7. GRANOCYTE 34 [Concomitant]
     Indication: DRUG USE FOR UNKNOWN INDICATION
  8. GLOBULIN NOS [Concomitant]
     Indication: ANAEMIA
  9. ACETAMINOPHEN [Concomitant]
     Indication: PYREXIA

REACTIONS (1)
  - FEBRILE BONE MARROW APLASIA [None]
